FAERS Safety Report 23815921 (Version 2)
Quarter: 2024Q2

REPORT INFORMATION
  Report Type: Spontaneous
  Country: CH (occurrence: CH)
  Receive Date: 20240503
  Receipt Date: 20240513
  Transmission Date: 20240716
  Serious: Yes (Death, Life-Threatening, Congenital Anomaly)
  Sender: FDA-Public Use
  Company Number: CH-AMERICAN REGENT INC-2024001573

PATIENT
  Sex: Male

DRUGS (6)
  1. FERINJECT [Suspect]
     Active Substance: FERRIC CARBOXYMALTOSE
     Indication: Product used for unknown indication
     Dosage: IN TOTAL (1 GM, 1 IN 1 TOTAL)
     Route: 064
     Dates: start: 20230224, end: 20230224
  2. ASPIRIN [Suspect]
     Active Substance: ASPIRIN
     Indication: Product used for unknown indication
     Dosage: UNK
     Route: 064
     Dates: start: 202302
  3. BUTYLSCOPOLAMINE BROMIDE [Concomitant]
     Active Substance: BUTYLSCOPOLAMINE BROMIDE
     Indication: Product used for unknown indication
     Dosage: 30 MG (10 MG, 1 IN 8 HR)
     Route: 064
     Dates: start: 20230524, end: 202305
  4. PRIMPERAN [Concomitant]
     Active Substance: METOCLOPRAMIDE HYDROCHLORIDE
     Indication: Product used for unknown indication
     Dosage: 10 MILLIGRAM, AS NECESSARY
     Route: 064
     Dates: start: 20230524, end: 202305
  5. CAFFEINE\MECLIZINE MONOHYDROCHLORIDE\PYRIDOXINE HYDROCHLORIDE [Concomitant]
     Active Substance: CAFFEINE\MECLIZINE MONOHYDROCHLORIDE\PYRIDOXINE HYDROCHLORIDE
     Indication: Product used for unknown indication
     Dosage: 2 DOSAGE FORM (1 DOSAGE FORM 1 IN 12 HR)
     Route: 064
     Dates: start: 20230524, end: 220305
  6. ESOMEPRAZOLE MAGNESIUM [Concomitant]
     Active Substance: ESOMEPRAZOLE MAGNESIUM
     Indication: Product used for unknown indication
     Dosage: 40 MILLIGRAM (40 MG, 1 IN 1 D)
     Route: 064
     Dates: start: 20230524, end: 20230531

REACTIONS (3)
  - Oligohydramnios [Fatal]
  - Renal aplasia [Fatal]
  - Foetal exposure during pregnancy [Unknown]

NARRATIVE: CASE EVENT DATE: 20230101
